FAERS Safety Report 7294375-6 (Version None)
Quarter: 2011Q1

REPORT INFORMATION
  Report Type: 
  Country: None (occurrence: None)
  Receive Date: 20110215
  Receipt Date: 20110204
  Transmission Date: 20110831
  Serious: Yes (Other)
  Sender: FDA-Public Use
  Company Number: US-AMGEN-USASP2010006615

PATIENT
  Age: 69 Year
  Sex: Female
  Weight: 51.701 kg

DRUGS (9)
  1. PROCRIT [Suspect]
     Indication: RENAL FAILURE CHRONIC
     Dosage: 20000 IU, UNK
     Route: 058
     Dates: start: 20101110
  2. PROCRIT [Suspect]
     Dosage: 40000 UNK, UNK
  3. PROCRIT [Suspect]
     Dosage: 40000 UNK, UNK
  4. PROCRIT [Suspect]
     Dosage: 40000 UNK, UNK
  5. LIPITOR [Concomitant]
  6. PROCRIT [Suspect]
     Dosage: 40000 UNK, UNK
  7. SYNTHROID [Concomitant]
  8. LOTREL [Concomitant]
  9. FOSAMAX [Concomitant]

REACTIONS (1)
  - THROMBOCYTOPENIA [None]
